FAERS Safety Report 8298858-1 (Version None)
Quarter: 2012Q2

REPORT INFORMATION
  Report Type: 
  Country: None (occurrence: None)
  Receive Date: 20120419
  Receipt Date: 20120417
  Transmission Date: 20120825
  Serious: Yes (Other)
  Sender: FDA-Public Use
  Company Number: US-PFIZER INC-2012054072

PATIENT
  Sex: Female

DRUGS (4)
  1. OPANA [Concomitant]
     Indication: BACK PAIN
     Dosage: UNK
     Route: 048
  2. IMPLANON [Concomitant]
     Indication: CONTRACEPTION
     Dosage: UNK
  3. PRISTIQ [Suspect]
     Indication: DEPRESSION
     Dosage: 50 MG, 1X/DAY
     Route: 048
     Dates: start: 20120116, end: 20120224
  4. ACYCLOVIR [Concomitant]
     Dosage: UNK
     Route: 048

REACTIONS (7)
  - DISORIENTATION [None]
  - HYPERREFLEXIA [None]
  - DYSARTHRIA [None]
  - DELIRIUM [None]
  - TACHYCARDIA [None]
  - HYPERTENSION [None]
  - TREMOR [None]
